FAERS Safety Report 24001711 (Version 1)
Quarter: 2024Q2

REPORT INFORMATION
  Report Type: Report from Study
  Country: US (occurrence: US)
  Receive Date: 20240621
  Receipt Date: 20240621
  Transmission Date: 20240716
  Serious: Yes (Other)
  Sender: FDA-Public Use
  Company Number: US-ABBVIE-5809210

PATIENT
  Sex: Female

DRUGS (1)
  1. BOTOX [Suspect]
     Active Substance: ONABOTULINUMTOXINA
     Indication: Migraine
     Dosage: TIME INTERVAL: AS NECESSARY
     Route: 065

REACTIONS (2)
  - Tonsillectomy [Unknown]
  - Migraine [Unknown]
